FAERS Safety Report 9268387 (Version 1)
Quarter: 2013Q2

REPORT INFORMATION
  Report Type: Report from Study
  Country: US (occurrence: US)
  Receive Date: 20130502
  Receipt Date: 20130502
  Transmission Date: 20140414
  Serious: Yes (Hospitalization)
  Sender: FDA-Public Use
  Company Number: US-ALEXION-A201202467

PATIENT
  Age: 8 Year
  Sex: Male

DRUGS (9)
  1. ECULIZUMAB [Suspect]
     Dosage: UNK, QMONTH
     Route: 042
  2. NORVASC [Concomitant]
     Dosage: 5 MG, BID
     Route: 048
  3. CALCITRIOL [Concomitant]
     Dosage: 0.25 ?G, QD
     Route: 048
  4. BICITRA [Concomitant]
     Dosage: 10 ML, BID
     Route: 048
  5. EPOGEN [Concomitant]
     Dosage: UNK, QW
     Route: 058
  6. LABETALOL [Concomitant]
     Dosage: 400 MG, BID
     Route: 048
  7. LISINOPRIL [Concomitant]
     Dosage: 5 MG, QD
     Route: 048
  8. COZAAR [Concomitant]
     Dosage: 50 MG, QD
     Route: 048
  9. SEVELAMER CARBONATE [Concomitant]
     Dosage: 800 MG, WITH MEALS/BEDTIME
     Route: 048

REACTIONS (1)
  - Diarrhoea [Recovered/Resolved]
